FAERS Safety Report 7799251-8 (Version None)
Quarter: 2011Q4

REPORT INFORMATION
  Report Type: 
  Country: None (occurrence: None)
  Receive Date: 20111006
  Receipt Date: 20101011
  Transmission Date: 20120403
  Serious: No
  Sender: FDA-Public Use
  Company Number: US-GLAXOSMITHKLINE-A0885888A

PATIENT
  Age: 60 Year
  Sex: Female

DRUGS (2)
  1. DUAC [Suspect]
     Dosage: 1APP TWICE PER DAY
     Route: 061
     Dates: start: 20101004, end: 20101007
  2. ZANTAC [Concomitant]

REACTIONS (1)
  - ABDOMINAL DISCOMFORT [None]
